FAERS Safety Report 14368041 (Version 2)
Quarter: 2018Q1

REPORT INFORMATION
  Report Type: Spontaneous
  Country: NO (occurrence: NO)
  Receive Date: 20180109
  Receipt Date: 20180122
  Transmission Date: 20180509
  Serious: No
  Sender: FDA-Public Use
  Company Number: NO-PFIZER INC-2018008337

PATIENT
  Age: 31 Year
  Sex: Female

DRUGS (4)
  1. CARMUSTINE [Suspect]
     Active Substance: CARMUSTINE
     Indication: ANGIOCENTRIC LYMPHOMA
     Dosage: HIGH-DOSE THERAPY
  2. ETOPOSIDE. [Suspect]
     Active Substance: ETOPOSIDE
     Indication: ANGIOCENTRIC LYMPHOMA
     Dosage: HIGH-DOSE THERAPY
  3. MELPHALAN. [Suspect]
     Active Substance: MELPHALAN
     Indication: ANGIOCENTRIC LYMPHOMA
     Dosage: HIGH-DOSE THERAPY
  4. CYTARABINE. [Suspect]
     Active Substance: CYTARABINE
     Indication: ANGIOCENTRIC LYMPHOMA
     Dosage: HIGH-DOSE THERAPY

REACTIONS (1)
  - Product use in unapproved indication [Unknown]
